FAERS Safety Report 6685793-5 (Version None)
Quarter: 2010Q2

REPORT INFORMATION
  Report Type: 
  Country: None (occurrence: None)
  Receive Date: 20100419
  Receipt Date: 20100406
  Transmission Date: 20101027
  Serious: Yes (Other)
  Sender: FDA-Public Use
  Company Number: US-BAYER-200918784NA

PATIENT
  Age: 31 Year
  Sex: Female
  Weight: 105 kg

DRUGS (1)
  1. MIRENA [Suspect]
     Indication: CONTRACEPTION
     Route: 015
     Dates: start: 20070911, end: 20090421

REACTIONS (4)
  - ABORTION SPONTANEOUS [None]
  - MEDICAL DEVICE COMPLICATION [None]
  - MENSTRUATION DELAYED [None]
  - PREGNANCY WITH CONTRACEPTIVE DEVICE [None]
